FAERS Safety Report 11525795 (Version 5)
Quarter: 2015Q4

REPORT INFORMATION
  Report Type: Spontaneous
  Country: US (occurrence: US)
  Receive Date: 20150918
  Receipt Date: 20151229
  Transmission Date: 20160304
  Serious: Yes (Death, Hospitalization)
  Sender: FDA-Public Use
  Company Number: US-ACTELION-A-NJ2015-124032

PATIENT
  Age: 67 Year
  Sex: Female

DRUGS (3)
  1. OPSUMIT [Suspect]
     Active Substance: MACITENTAN
     Indication: PULMONARY HYPERTENSION
     Dosage: 10 MG, QD
     Route: 048
     Dates: start: 20150401, end: 20151211
  2. FLOLAN [Concomitant]
     Active Substance: EPOPROSTENOL SODIUM
  3. RIOCIGUAT [Concomitant]
     Active Substance: RIOCIGUAT

REACTIONS (9)
  - Memory impairment [Unknown]
  - Syncope [Unknown]
  - Head injury [Unknown]
  - Cardiac failure [Fatal]
  - Endotracheal intubation [Unknown]
  - Pulmonary arterial hypertension [Unknown]
  - Seizure [Unknown]
  - Fall [Unknown]
  - Upper limb fracture [Unknown]

NARRATIVE: CASE EVENT DATE: 20151207
